FAERS Safety Report 21315024 (Version 1)
Quarter: 2022Q3

REPORT INFORMATION
  Report Type: Report from Study
  Country: US (occurrence: US)
  Receive Date: 20220909
  Receipt Date: 20220909
  Transmission Date: 20221027
  Serious: Yes (Hospitalization)
  Sender: FDA-Public Use
  Company Number: US-ABBVIE-22K-163-4526051-00

PATIENT
  Age: 82 Year
  Sex: Female

DRUGS (5)
  1. VENCLEXTA [Suspect]
     Active Substance: VENETOCLAX
     Indication: Acute monocytic leukaemia
     Dosage: PATIENT WAS ON ONE WEEK ON AND ONE WEEK OFF OF VENCLEXTA
     Route: 048
     Dates: start: 202112
  2. CHONDROITIN SULFATE (BOVINE)\GLUCOSAMINE HYDROCHLORIDE [Concomitant]
     Active Substance: CHONDROITIN SULFATE (BOVINE)\GLUCOSAMINE HYDROCHLORIDE
     Indication: Product used for unknown indication
     Dosage: RA
     Route: 048
  3. TYLENOL EXTRA STRENGTH [Concomitant]
     Active Substance: ACETAMINOPHEN
     Indication: Product used for unknown indication
     Route: 048
  4. PRILOSEC [Concomitant]
     Active Substance: OMEPRAZOLE MAGNESIUM
     Indication: Product used for unknown indication
     Dosage: OTC
     Route: 048
  5. CLOBETASOL PROPIONATE E [Concomitant]
     Indication: Product used for unknown indication
     Dosage: EXTERNAL CR

REACTIONS (1)
  - Bacterial infection [Recovering/Resolving]

NARRATIVE: CASE EVENT DATE: 20220829
